FAERS Safety Report 22651325 (Version 1)
Quarter: 2023Q2

REPORT INFORMATION
  Report Type: Spontaneous
  Country: FR (occurrence: FR)
  Receive Date: 20230628
  Receipt Date: 20230628
  Transmission Date: 20230721
  Serious: Yes (Hospitalization)
  Sender: FDA-Public Use
  Company Number: None

PATIENT
  Age: 56 Year
  Sex: Female
  Weight: 48 kg

DRUGS (11)
  1. BRAFTOVI [Suspect]
     Active Substance: ENCORAFENIB
     Indication: Adenocarcinoma of colon
     Dosage: 300 MG PER DAY
     Route: 048
     Dates: start: 20220726, end: 20230422
  2. ALCOHOL [Suspect]
     Active Substance: ALCOHOL
     Indication: Social alcohol drinker
     Dosage: 5 % ( 2 BEERS AT 5 DEGREE)
     Route: 048
     Dates: start: 20230422, end: 20230422
  3. DIAMORPHINE [Suspect]
     Active Substance: DIAMORPHINE
     Indication: Drug dependence
     Dosage: 1 DF
     Route: 042
     Dates: start: 20230422, end: 20230422
  4. MORPHINE SULFATE [Suspect]
     Active Substance: MORPHINE SULFATE
     Indication: Neuralgia
     Dosage: 10 MG IF NECESSARY USUALLY 1 PER WEEK
     Route: 048
     Dates: start: 2020, end: 202304
  5. MORPHINE SULFATE [Suspect]
     Active Substance: MORPHINE SULFATE
     Dosage: 10 MG SYSTEMATISED AT 3 PER DAY IN THE WEEK PRECEDING THE ADVERSE EVENT
     Route: 048
     Dates: start: 202304, end: 20230424
  6. LEVOTHYROXINE [Concomitant]
     Active Substance: LEVOTHYROXINE
     Indication: Thyroid disorder
     Dosage: 1 DF PER DAY
     Route: 048
  7. ERBITUX [Concomitant]
     Active Substance: CETUXIMAB
     Indication: Adenocarcinoma of colon
     Dosage: 1 DF EVERY 2 WEEKS
     Route: 042
     Dates: start: 20220726, end: 20230418
  8. HYDROCORTISONE HEMISUCCINATE [Concomitant]
     Active Substance: HYDROCORTISONE HEMISUCCINATE
     Indication: Adrenal insufficiency
     Dosage: 30 MG PER DAY
     Route: 048
  9. ZOPICLONE [Concomitant]
     Active Substance: ZOPICLONE
     Indication: Insomnia
     Dosage: 7.5 MG PER DAY
     Route: 048
  10. DOXYCYCLINE [Concomitant]
     Active Substance: DOXYCYCLINE
     Dosage: 100 MG PER DAY
     Route: 048
  11. PAROXETINE [Concomitant]
     Active Substance: PAROXETINE
     Dosage: 20 MG PER DAY
     Route: 048

REACTIONS (1)
  - Oedematous pancreatitis [Recovered/Resolved]

NARRATIVE: CASE EVENT DATE: 20230423
